FAERS Safety Report 7314840-2 (Version None)
Quarter: 2011Q1

REPORT INFORMATION
  Report Type: 
  Country: None (occurrence: None)
  Receive Date: 20110218
  Receipt Date: 20110218
  Transmission Date: 20110831
  Serious: No
  Sender: FDA-Public Use
  Company Number: None

PATIENT
  Age: 21 Year
  Sex: Female
  Weight: 59.8748 kg

DRUGS (1)
  1. SERTRALINE HYDROCHLORIDE [Suspect]
     Indication: SEASONAL AFFECTIVE DISORDER
     Dosage: 50MG ONCE DAILY PO
     Route: 048
     Dates: start: 20110201, end: 20110209

REACTIONS (3)
  - INSOMNIA [None]
  - SUDDEN ONSET OF SLEEP [None]
  - ANXIETY [None]
